FAERS Safety Report 9455600 (Version 2)
Quarter: 2013Q3

REPORT INFORMATION
  Report Type: Spontaneous
  Country: US (occurrence: US)
  Receive Date: 20130813
  Receipt Date: 20130903
  Transmission Date: 20140515
  Serious: Yes (Other)
  Sender: FDA-Public Use
  Company Number: US-PFIZER INC-2013233439

PATIENT
  Sex: Female

DRUGS (2)
  1. IBUPROFEN [Suspect]
     Dosage: UNK
  2. TYLENOL [Suspect]
     Dosage: UNK

REACTIONS (2)
  - Gastrointestinal haemorrhage [Unknown]
  - Drug intolerance [Unknown]
